FAERS Safety Report 4543445-1 (Version None)
Quarter: 2005Q1

REPORT INFORMATION
  Report Type: 
  Country: None (occurrence: None)
  Receive Date: 20050103
  Receipt Date: 20041207
  Transmission Date: 20050727
  Serious: Yes (Life-Threatening, Hospitalization, Disabling, Other)
  Sender: FDA-Public Use
  Company Number: US-MERCK-0412USA00867

PATIENT
  Age: 57 Year
  Sex: Female
  Weight: 108 kg

DRUGS (10)
  1. VIOXX [Suspect]
     Indication: ARTHRALGIA
     Route: 048
     Dates: start: 19990831
  2. VIOXX [Suspect]
     Indication: ARTHRITIS
     Route: 048
     Dates: start: 19990831
  3. FLEXERIL [Concomitant]
     Route: 048
  4. VASOTEC [Concomitant]
     Route: 048
  5. HYZAAR [Concomitant]
     Route: 048
  6. TACRINE HYDROCHLORIDE [Concomitant]
     Route: 048
     Dates: start: 20000921, end: 20000927
  7. FLOVENT [Concomitant]
     Route: 065
  8. FLONASE [Concomitant]
     Route: 065
  9. LASIX [Concomitant]
     Route: 048
  10. ACETAMINOPHEN [Concomitant]
     Route: 065

REACTIONS (27)
  - ANAEMIA OF CHRONIC DISEASE [None]
  - BRONCHOPNEUMONIA [None]
  - CALCULUS URINARY [None]
  - CARDIAC FAILURE CONGESTIVE [None]
  - CARDIOMYOPATHY [None]
  - CHRONIC OBSTRUCTIVE PULMONARY DISEASE [None]
  - COR PULMONALE [None]
  - DEHYDRATION [None]
  - DEPRESSION [None]
  - DIARRHOEA [None]
  - GOUT [None]
  - HYPERKALAEMIA [None]
  - HYPERPHOSPHATAEMIA [None]
  - HYPERTENSION [None]
  - HYPERTENSIVE HEART DISEASE [None]
  - HYPERTENSIVE NEPHROPATHY [None]
  - MALIGNANT HYPERTENSION [None]
  - MITRAL VALVE INCOMPETENCE [None]
  - MYALGIA [None]
  - MYOCARDIAL INFARCTION [None]
  - NEPHROSCLEROSIS [None]
  - RENAL FAILURE [None]
  - RENAL FAILURE ACUTE [None]
  - RHINITIS ALLERGIC [None]
  - SLEEP APNOEA SYNDROME [None]
  - TREATMENT NONCOMPLIANCE [None]
  - TRICUSPID VALVE INCOMPETENCE [None]
